FAERS Safety Report 14686837 (Version 3)
Quarter: 2018Q2

REPORT INFORMATION
  Report Type: Spontaneous
  Country: US (occurrence: US)
  Receive Date: 20180327
  Receipt Date: 20180510
  Transmission Date: 20180711
  Serious: No
  Sender: FDA-Public Use
  Company Number: US-PFIZER INC-2018120064

PATIENT
  Age: 66 Year
  Sex: Female
  Weight: 83.9 kg

DRUGS (4)
  1. GENOTROPIN [Suspect]
     Active Substance: SOMATROPIN
     Indication: HYPOTHALAMO-PITUITARY DISORDER
     Dosage: 0.5 MG, 1X/DAY (AT NIGHT)
     Route: 058
  2. GENOTROPIN [Suspect]
     Active Substance: SOMATROPIN
     Indication: GROWTH HORMONE DEFICIENCY
  3. LEVOXYL [Concomitant]
     Active Substance: LEVOTHYROXINE SODIUM
     Indication: THYROID THERAPY
     Dosage: 75 MG, 1X/DAY; (EVERY MORNING)
     Route: 048
  4. AMBIEN [Concomitant]
     Active Substance: ZOLPIDEM TARTRATE
     Indication: INSOMNIA
     Dosage: UNK UNK, 1X/DAY (HALF TABLET/AT NIGHT)
     Route: 048

REACTIONS (6)
  - Device issue [Unknown]
  - Condition aggravated [Not Recovered/Not Resolved]
  - Exposure via skin contact [Unknown]
  - Accidental exposure to product [Unknown]
  - Drug dose omission [Unknown]
  - Insomnia [Not Recovered/Not Resolved]

NARRATIVE: CASE EVENT DATE: 201803
